FAERS Safety Report 9338001 (Version 2)
Quarter: 2013Q2

REPORT INFORMATION
  Report Type: Report from Study
  Country: JP (occurrence: JP)
  Receive Date: 20130610
  Receipt Date: 20130613
  Transmission Date: 20140414
  Serious: Yes (Hospitalization, Other)
  Sender: FDA-Public Use
  Company Number: JP-BRISTOL-MYERS SQUIBB COMPANY-18966325

PATIENT
  Age: 41 Year
  Sex: Female

DRUGS (15)
  1. ABILIFY TABS [Suspect]
     Indication: SCHIZOPHRENIA
     Dosage: LAST DOSE-19APR13
     Route: 048
     Dates: start: 20130408, end: 20130408
  2. RISPERIDONE [Concomitant]
  3. VALERIN [Concomitant]
  4. LORAZEPAM [Concomitant]
  5. BIPERIDEN HCL [Concomitant]
     Dates: start: 20130415
  6. LEVOMEPROMAZINE MALEATE [Concomitant]
  7. AMITRIPTYLINE HCL [Concomitant]
  8. ESTAZOLAM [Concomitant]
     Dates: start: 20130322
  9. CONTOMIN [Concomitant]
     Dates: start: 20130322
  10. BROTIZOLAM [Concomitant]
  11. FLUNITRAZEPAM [Concomitant]
  12. ETIZOLAM [Concomitant]
  13. TRAZODONE HCL [Concomitant]
  14. SENNOSIDE [Concomitant]
  15. MAGMITT [Concomitant]

REACTIONS (3)
  - Blood creatine phosphokinase increased [Recovered/Resolved]
  - Parkinsonism [Not Recovered/Not Resolved]
  - Constipation [Not Recovered/Not Resolved]
